FAERS Safety Report 4917155-2 (Version None)
Quarter: 2006Q1

REPORT INFORMATION
  Report Type: 
  Country: None (occurrence: None)
  Receive Date: 20060216
  Receipt Date: 20060216
  Transmission Date: 20060701
  Serious: Yes (Other)
  Sender: FDA-Public Use
  Company Number: None

PATIENT
  Age: 44 Year
  Sex: Male
  Weight: 87.5442 kg

DRUGS (1)
  1. VIAGRA [Suspect]
     Indication: ERECTILE DYSFUNCTION
     Dosage: VIAGRA ONCE PO
     Route: 048
     Dates: start: 20051101

REACTIONS (4)
  - BLOOD PRESSURE INCREASED [None]
  - CYANOPSIA [None]
  - DIZZINESS [None]
  - HEADACHE [None]
